FAERS Safety Report 5381318-5 (Version None)
Quarter: 2007Q2

REPORT INFORMATION
  Report Type: 
  Country: None (occurrence: None)
  Receive Date: 20070629
  Receipt Date: 20070103
  Transmission Date: 20071010
  Serious: Yes (Other)
  Sender: FDA-Public Use
  Company Number: 07H-163-0311654-00

PATIENT
  Sex: Male

DRUGS (1)
  1. QUELICIN [Suspect]
     Indication: INTUBATION
     Dosage: 10 MG, ONCE, INTRAVENOUS 70 MG, ONCE, INTRAVENOUS 80 MG, ONCE, INTRAVENOUS
     Route: 042
     Dates: start: 20061201

REACTIONS (1)
  - DRUG INEFFECTIVE [None]
